FAERS Safety Report 9387319 (Version 5)
Quarter: 2013Q3

REPORT INFORMATION
  Report Type: Spontaneous
  Country: US (occurrence: US)
  Receive Date: 20130708
  Receipt Date: 20130920
  Transmission Date: 20140515
  Serious: Yes (Hospitalization, Congenital Anomaly, Other)
  Sender: FDA-Public Use
  Company Number: US-JNJFOC-20130700215

PATIENT
  Sex: Male

DRUGS (4)
  1. TOPAMAX [Suspect]
     Indication: MIGRAINE
     Dosage: MATERNAL DOSE
     Route: 064
  2. LORTAB [Suspect]
     Indication: PRODUCT USED FOR UNKNOWN INDICATION
     Dosage: MATERNAL DOSE
     Route: 064
  3. MAXALT [Suspect]
     Indication: FOETAL EXPOSURE DURING PREGNANCY
     Route: 064
     Dates: end: 2009
  4. PRENATAL VITAMINS [Concomitant]
     Indication: PRODUCT USED FOR UNKNOWN INDICATION
     Route: 064

REACTIONS (12)
  - Otitis media acute [Recovered/Resolved]
  - Sandifer^s syndrome [Recovering/Resolving]
  - Cleft uvula [Unknown]
  - Foetal exposure during pregnancy [Recovered/Resolved]
  - Otitis media [Recovered/Resolved]
  - Eustachian tube dysfunction [Unknown]
  - Hearing impaired [Unknown]
  - Choking [Recovering/Resolving]
  - Retching [Recovering/Resolving]
  - Apnoea [Recovering/Resolving]
  - Cyanosis [Recovering/Resolving]
  - Hypersensitivity [Recovering/Resolving]
